FAERS Safety Report 16738643 (Version 1)
Quarter: 2019Q3

REPORT INFORMATION
  Report Type: Spontaneous
  Country: US (occurrence: US)
  Receive Date: 20190826
  Receipt Date: 20190826
  Transmission Date: 20191005
  Serious: No
  Sender: FDA-Public Use
  Company Number: US-AUROBINDO-AUR-APL-2019-049079

PATIENT

DRUGS (11)
  1. BELEODAQ [Suspect]
     Active Substance: BELINOSTAT
     Dosage: 1500 MG, QD
     Route: 042
     Dates: start: 20181018, end: 20181019
  2. BELEODAQ [Suspect]
     Active Substance: BELINOSTAT
     Dosage: 1500 MG, QD
     Route: 042
     Dates: start: 20181022, end: 20181023
  3. FAMCICLOVIR. [Concomitant]
     Active Substance: FAMCICLOVIR
     Indication: PRODUCT USED FOR UNKNOWN INDICATION
  4. BENADRYL [Concomitant]
     Active Substance: DIPHENHYDRAMINE HYDROCHLORIDE
     Indication: PRODUCT USED FOR UNKNOWN INDICATION
     Dosage: UNK, HS
  5. VITAMIN B COMPLEX [Concomitant]
     Active Substance: CYANOCOBALAMIN\DEXPANTHENOL\NIACINAMIDE\PYRIDOXINE HYDROCHLORIDE\RIBOFLAVIN 5^-PHOSPHATE SODIUM\THIAMINE HYDROCHLORIDE\VITAMIN B COMPLEX
     Indication: PRODUCT USED FOR UNKNOWN INDICATION
  6. VIIBRYD [Concomitant]
     Active Substance: VILAZODONE HYDROCHLORIDE
     Indication: PRODUCT USED FOR UNKNOWN INDICATION
     Dosage: 40 MG, QD
     Route: 048
  7. BELEODAQ [Suspect]
     Active Substance: BELINOSTAT
     Indication: CUTANEOUS T-CELL LYMPHOMA
     Dosage: 1500 MG, SINGLE
     Route: 042
     Dates: start: 20181016, end: 20181016
  8. ATIVAN [Concomitant]
     Active Substance: LORAZEPAM
     Indication: NAUSEA
  9. LEVOTHYROXINE. [Concomitant]
     Active Substance: LEVOTHYROXINE
     Indication: PRODUCT USED FOR UNKNOWN INDICATION
     Dosage: 100 UG, QD
  10. CLOBETASOL [Concomitant]
     Active Substance: CLOBETASOL
     Indication: PRODUCT USED FOR UNKNOWN INDICATION
     Route: 061
  11. HYDROXYZINE [Concomitant]
     Active Substance: HYDROXYZINE HYDROCHLORIDE
     Indication: PRURITUS

REACTIONS (4)
  - Deep vein thrombosis [Recovering/Resolving]
  - Infusion site pain [Recovering/Resolving]
  - Off label use [Unknown]
  - Phlebitis [Recovering/Resolving]

NARRATIVE: CASE EVENT DATE: 20181016
